FAERS Safety Report 18226779 (Version 1)
Quarter: 2020Q3

REPORT INFORMATION
  Report Type: Report from Study
  Country: CL (occurrence: CL)
  Receive Date: 20200903
  Receipt Date: 20200903
  Transmission Date: 20201103
  Serious: Yes (Other)
  Sender: FDA-Public Use
  Company Number: NVSC2019CL071352

PATIENT
  Age: 49 Year
  Sex: Female

DRUGS (5)
  1. COSENTYX [Suspect]
     Active Substance: SECUKINUMAB
     Indication: ANKYLOSING SPONDYLITIS
     Dosage: 150 MG
     Route: 058
     Dates: start: 20190930
  2. COSENTYX [Suspect]
     Active Substance: SECUKINUMAB
     Dosage: UNK
     Route: 065
     Dates: start: 20191223
  3. COSENTYX [Suspect]
     Active Substance: SECUKINUMAB
     Indication: PSORIATIC ARTHROPATHY
     Dosage: 150 MG, QMO
     Route: 058
     Dates: start: 20190101
  4. COSENTYX [Suspect]
     Active Substance: SECUKINUMAB
     Dosage: UNK
     Route: 065
     Dates: start: 20191125
  5. COSENTYX [Suspect]
     Active Substance: SECUKINUMAB
     Dosage: 150 MG, QMO
     Route: 065
     Dates: start: 20200724

REACTIONS (8)
  - Inflammation [Not Recovered/Not Resolved]
  - Pain [Not Recovered/Not Resolved]
  - Finger deformity [Not Recovered/Not Resolved]
  - Immunodeficiency [Unknown]
  - Malaise [Not Recovered/Not Resolved]
  - Coronavirus infection [Recovering/Resolving]
  - Skin discolouration [Recovering/Resolving]
  - Nervousness [Not Recovered/Not Resolved]

NARRATIVE: CASE EVENT DATE: 20191125
